FAERS Safety Report 25268251 (Version 2)
Quarter: 2025Q2

REPORT INFORMATION
  Report Type: Spontaneous
  Country: GR (occurrence: GR)
  Receive Date: 20250505
  Receipt Date: 20250604
  Transmission Date: 20250716
  Serious: No
  Sender: PFIZER
  Company Number: GR-PFIZER INC-PV202500051705

PATIENT
  Age: 15 Year
  Sex: Male
  Weight: 66 kg

DRUGS (2)
  1. GENOTROPIN [Suspect]
     Active Substance: SOMATROPIN
     Indication: Growth hormone deficiency
     Dosage: 14 MG, WEEKLY (14MG IN TOTAL ONE WEEK, 15MG IN TOTAL THE NEXT, ALTERNATELY) / 12 MG
     Route: 058
     Dates: start: 20230214
  2. GENOTROPIN [Suspect]
     Active Substance: SOMATROPIN
     Dosage: 15 MG, WEEKLY (14MG IN TOTAL ONE WEEK, 15MG IN TOTAL THE NEXT, ALTERNATELY) / 12 MG
     Route: 058
     Dates: start: 20230214

REACTIONS (2)
  - Wrong technique in device usage process [Recovered/Resolved]
  - Device leakage [Recovered/Resolved]

NARRATIVE: CASE EVENT DATE: 20250401
